FAERS Safety Report 10256418 (Version 1)
Quarter: 2014Q2

REPORT INFORMATION
  Report Type: Spontaneous
  Country: LK (occurrence: LK)
  Receive Date: 20140624
  Receipt Date: 20140624
  Transmission Date: 20141212
  Serious: Yes (Hospitalization)
  Sender: FDA-Public Use
  Company Number: LK-B.I. PHARMACEUTICALS,INC./RIDGEFIELD-2014-BI-28172GD

PATIENT
  Age: 44 Year
  Sex: Male

DRUGS (3)
  1. TELMISARTAN [Suspect]
     Indication: BLOOD PRESSURE INCREASED
     Dosage: 80 MG
     Route: 065
  2. TELMISARTAN [Suspect]
     Dosage: 40 MG
     Route: 065
  3. IMMUNOGLOBULINS [Suspect]
     Indication: MILLER FISHER SYNDROME
     Dosage: 36 G
     Route: 042

REACTIONS (4)
  - Haemorrhagic cerebral infarction [Unknown]
  - Convulsion [Recovered/Resolved]
  - Headache [Recovered/Resolved]
  - Hypotension [Recovered/Resolved]
